FAERS Safety Report 22079874 (Version 1)
Quarter: 2023Q1

REPORT INFORMATION
  Report Type: Spontaneous
  Country: FR (occurrence: FR)
  Receive Date: 20230309
  Receipt Date: 20230309
  Transmission Date: 20230417
  Serious: Yes (Other)
  Sender: FDA-Public Use
  Company Number: None

PATIENT

DRUGS (3)
  1. ZONISAMIDE [Suspect]
     Active Substance: ZONISAMIDE
     Indication: Epilepsy
     Dosage: 25 MG, QD, ZONEGRAN (25 MG LE MATIN)
     Route: 048
     Dates: start: 20220823, end: 20220903
  2. ZONISAMIDE [Suspect]
     Active Substance: ZONISAMIDE
     Dosage: 50 MG, QD, ZONEGRAN (25 MG LE MATIN ET 25 MG LE SOIR)
     Route: 048
     Dates: start: 20220904, end: 20220911
  3. ZONISAMIDE [Suspect]
     Active Substance: ZONISAMIDE
     Dosage: 100 MG, QD, ZONEGRAN (50 MG LE MATIN ET 50 MG LE SOIR)
     Route: 048
     Dates: start: 20220912

REACTIONS (3)
  - Epilepsy [Not Recovered/Not Resolved]
  - Feeling abnormal [Not Recovered/Not Resolved]
  - Vertigo [Not Recovered/Not Resolved]

NARRATIVE: CASE EVENT DATE: 20220101
